FAERS Safety Report 5305503-3 (Version None)
Quarter: 2007Q2

REPORT INFORMATION
  Report Type: 
  Country: None (occurrence: None)
  Receive Date: 20070416
  Receipt Date: 20070409
  Transmission Date: 20071010
  Serious: Yes (Hospitalization)
  Sender: FDA-Public Use
  Company Number: 2007PV028295

PATIENT
  Age: 78 Year
  Sex: Female
  Weight: 62.5964 kg

DRUGS (3)
  1. BYETTA [Suspect]
     Indication: DIABETES MELLITUS NON-INSULIN-DEPENDENT
     Dosage: SEE IMAGE
     Route: 058
     Dates: start: 20051001, end: 20070101
  2. BYETTA [Suspect]
     Indication: DIABETES MELLITUS NON-INSULIN-DEPENDENT
     Dosage: SEE IMAGE
     Route: 058
     Dates: start: 20070101
  3. GLIPIZIDE [Concomitant]

REACTIONS (4)
  - CARDIAC PACEMAKER INSERTION [None]
  - CARDIOMYOPATHY [None]
  - DYSPNOEA [None]
  - WEIGHT DECREASED [None]
